FAERS Safety Report 6313176-6 (Version None)
Quarter: 2009Q3

REPORT INFORMATION
  Report Type: 
  Country: None (occurrence: None)
  Receive Date: 20090818
  Receipt Date: 20090807
  Transmission Date: 20100115
  Serious: Yes (Other)
  Sender: FDA-Public Use
  Company Number: US-ROCHE-649539

PATIENT
  Sex: Male
  Weight: 79.4 kg

DRUGS (1)
  1. RO 5185426 (SELECTIVE B-RAF KINASE INHIBITOR) [Suspect]
     Dosage: DOSE-960, UNIT NOT REPORTED. DRUG WITHDRAWN
     Route: 048
     Dates: start: 20090610

REACTIONS (3)
  - ALANINE AMINOTRANSFERASE [None]
  - ASPARTATE AMINOTRANSFERASE [None]
  - SQUAMOUS CELL CARCINOMA OF SKIN [None]
